FAERS Safety Report 25683936 (Version 1)
Quarter: 2025Q3

REPORT INFORMATION
  Report Type: Report from Study
  Country: US (occurrence: US)
  Receive Date: 20250815
  Receipt Date: 20250815
  Transmission Date: 20251020
  Serious: Yes (Other)
  Sender: ALEXION PHARMACEUTICALS
  Company Number: US-AstraZeneca-CH-00929016A

PATIENT
  Sex: Male

DRUGS (2)
  1. SOLIRIS [Suspect]
     Active Substance: ECULIZUMAB
     Indication: Paroxysmal nocturnal haemoglobinuria
     Route: 065
  2. ULTOMIRIS [Suspect]
     Active Substance: RAVULIZUMAB-CWVZ
     Indication: Paroxysmal nocturnal haemoglobinuria
     Route: 065

REACTIONS (8)
  - Hepatic vascular thrombosis [Unknown]
  - Body temperature increased [Unknown]
  - Pyrexia [Unknown]
  - Somnolence [Unknown]
  - Platelet adhesiveness increased [Unknown]
  - Hypoacusis [Unknown]
  - Food allergy [Unknown]
  - Nausea [Unknown]
